FAERS Safety Report 4936352-3 (Version None)
Quarter: 2006Q1

REPORT INFORMATION
  Report Type: 
  Country: None (occurrence: None)
  Receive Date: 20060127
  Receipt Date: 20051026
  Transmission Date: 20060701
  Serious: Yes (Other)
  Sender: FDA-Public Use
  Company Number: 2005148693

PATIENT
  Age: 80 Year
  Sex: Female
  Weight: 52.6173 kg

DRUGS (4)
  1. LYRICA [Suspect]
     Indication: NEUROPATHY PERIPHERAL
     Dosage: 100 MG (50 MG, 2 IN 1 D), ORAL
     Route: 048
     Dates: start: 20051022, end: 20051024
  2. PREMARIN [Concomitant]
  3. ULTRAM [Concomitant]
  4. CRESTOR [Concomitant]

REACTIONS (12)
  - ANXIETY [None]
  - ASTHENIA [None]
  - BLOOD GLUCOSE FLUCTUATION [None]
  - CONSTIPATION [None]
  - DRY MOUTH [None]
  - FEAR [None]
  - LETHARGY [None]
  - MYOPIA [None]
  - NIGHTMARE [None]
  - PANIC ATTACK [None]
  - TREMOR [None]
  - VISUAL DISTURBANCE [None]
